APPROVED DRUG PRODUCT: ISOPROTERENOL HYDROCHLORIDE
Active Ingredient: ISOPROTERENOL HYDROCHLORIDE
Strength: 0.2MG/ML
Dosage Form/Route: INJECTABLE;INJECTION
Application: A211864 | Product #001
Applicant: EUGIA PHARMA SPECIALITIES LTD
Approved: Feb 9, 2021 | RLD: No | RS: No | Type: DISCN